FAERS Safety Report 8770060 (Version 2)
Quarter: 2012Q4

REPORT INFORMATION
  Report Type: Report from Study
  Country: DE (occurrence: DE)
  Receive Date: 20120904
  Receipt Date: 20120914
  Transmission Date: 20130627
  Serious: Yes (Death, Hospitalization)
  Sender: FDA-Public Use
  Company Number: DE-MPIJNJ-2012-06189

PATIENT

DRUGS (9)
  1. VELCADE [Suspect]
     Indication: AMYLOIDOSIS
     Dosage: 2.7 mg, UNK
     Route: 058
     Dates: start: 20120810, end: 20120820
  2. DEXAMETHASONE [Suspect]
     Indication: AMYLOIDOSIS
     Dosage: 20 mg, UNK
     Route: 048
     Dates: start: 20120810, end: 20120820
  3. PANTOPRAZOL [Concomitant]
     Indication: PROPHYLAXIS
     Dosage: 40 mg, UNK
     Route: 048
     Dates: start: 20090101, end: 20120828
  4. CEFUROXIM                          /00454602/ [Concomitant]
     Indication: PROPHYLAXIS
     Dosage: 500 mg, UNK
     Route: 048
     Dates: start: 20120810, end: 20120828
  5. METOPROLOL [Concomitant]
     Indication: HYPERTENSION
     Dosage: 23.75 mg, UNK
     Route: 048
     Dates: end: 20120828
  6. CANDESARTAN [Concomitant]
     Indication: HYPERTENSION
     Dosage: 4 mg, UNK
     Route: 048
     Dates: end: 20120828
  7. SPIRONOLACTON [Concomitant]
     Indication: CARDIAC FAILURE
     Dosage: 25 mg, UNK
     Route: 048
     Dates: end: 20120828
  8. TORASEMID [Concomitant]
     Indication: CARDIAC FAILURE
     Dosage: 10 mg, UNK
     Route: 048
     Dates: end: 20120828
  9. ACICLOVIR [Concomitant]
     Indication: PROPHYLAXIS
     Dosage: 400 mg, UNK
     Route: 048
     Dates: start: 20120809, end: 20120828

REACTIONS (2)
  - Cardiac arrest [Fatal]
  - Cardiac death [None]
